FAERS Safety Report 9965424 (Version 1)
Quarter: 2014Q1

REPORT INFORMATION
  Report Type: Report from Study
  Country: US (occurrence: US)
  Receive Date: 20140305
  Receipt Date: 20140305
  Transmission Date: 20141002
  Serious: No
  Sender: FDA-Public Use
  Company Number: US-ABBVIE-13P-163-1125291-00

PATIENT
  Sex: Female
  Weight: 143.92 kg

DRUGS (20)
  1. HUMIRA [Suspect]
     Indication: RHEUMATOID ARTHRITIS
  2. ALBUTEROL [Concomitant]
     Indication: ASTHMA
  3. AMBIEN [Concomitant]
     Indication: INSOMNIA
  4. CLARITIN [Concomitant]
     Indication: HYPERSENSITIVITY
  5. DILAUDID [Concomitant]
     Indication: PAIN
  6. FOLIC ACID [Concomitant]
     Indication: VITAMIN SUPPLEMENTATION
  7. GABAPENTIN [Concomitant]
     Indication: PAIN
  8. HYDROCODONE [Concomitant]
     Indication: PAIN
  9. LEVOTHYROXINE [Concomitant]
     Indication: HYPOTHYROIDISM
  10. LIDODERM [Concomitant]
     Indication: PAIN
  11. LISINOPRIL [Concomitant]
     Indication: HYPERTENSION
  12. OMEPRAZOLE [Concomitant]
     Indication: GASTROOESOPHAGEAL REFLUX DISEASE
  13. PROGESTERONE [Concomitant]
     Indication: HORMONE REPLACEMENT THERAPY
  14. MELATONIN [Concomitant]
     Indication: VITAMIN SUPPLEMENTATION
  15. METHOTREXATE [Concomitant]
     Indication: RHEUMATOID ARTHRITIS
  16. REGLAN [Concomitant]
     Indication: GASTROOESOPHAGEAL REFLUX DISEASE
  17. HYDROCHLOROTHIAZIDE [Concomitant]
     Indication: FLUID RETENTION
  18. VENTOLIN [Concomitant]
     Indication: ASTHMA
  19. WELLBUTRIN [Concomitant]
     Indication: DEPRESSION
  20. XANAX [Concomitant]
     Indication: ANXIETY

REACTIONS (2)
  - Injection site pain [Recovered/Resolved]
  - Injection site pain [Recovered/Resolved]
